FAERS Safety Report 11547571 (Version 3)
Quarter: 2016Q1

REPORT INFORMATION
  Report Type: Spontaneous
  Country: FR (occurrence: FR)
  Receive Date: 20150924
  Receipt Date: 20160114
  Transmission Date: 20160525
  Serious: Yes (Hospitalization)
  Sender: FDA-Public Use
  Company Number: FR-PFIZER INC-2015314786

PATIENT
  Age: 33 Year
  Sex: Female

DRUGS (12)
  1. METFORMIN [Suspect]
     Active Substance: METFORMIN HYDROCHLORIDE
     Indication: IN VITRO FERTILISATION
     Dosage: 250 MG, 2X/DAY
     Route: 048
     Dates: start: 20150307, end: 2015
  2. METFORMIN [Suspect]
     Active Substance: METFORMIN HYDROCHLORIDE
     Dosage: 500 MG, 2X/DAY
     Route: 048
     Dates: start: 2015, end: 20150810
  3. DECAPEPTYL (ACETATE) [Concomitant]
     Active Substance: TRIPTORELIN ACETATE
     Dosage: 0.1 MG, FOR SEVERAL DAYS
     Route: 058
     Dates: start: 20150602, end: 20150810
  4. OVITRELLE [Concomitant]
     Active Substance: CHORIOGONADOTROPIN ALFA
     Dosage: UNK
     Dates: start: 20150602, end: 20150810
  5. TORENTAL LP [Concomitant]
     Active Substance: PENTOXIFYLLINE
     Dosage: UNK
     Dates: start: 201508, end: 20150810
  6. PROVAMES [Concomitant]
     Active Substance: ESTRADIOL
     Dosage: 2 MG, 2X/DAY
     Dates: start: 20150615, end: 20150628
  7. FLUTAMIDE. [Suspect]
     Active Substance: FLUTAMIDE
     Indication: IN VITRO FERTILISATION
     Dosage: 250 MG, 2X/DAY
     Route: 048
     Dates: start: 20150521, end: 20150810
  8. TOCO [Suspect]
     Active Substance: UNSPECIFIED INGREDIENT
     Indication: IN VITRO FERTILISATION
     Dosage: 500 MG, 1X/DAY
     Route: 048
     Dates: start: 20150112, end: 20150810
  9. TRI MINULET [Concomitant]
     Dosage: 1 DF, DAILY
     Dates: end: 20150810
  10. DOSTINEX [Suspect]
     Active Substance: CABERGOLINE
     Indication: IN VITRO FERTILISATION
     Dosage: 0.25 MG, 2X/WEEK
     Route: 048
     Dates: start: 20150423, end: 20150810
  11. ASPEGIC [Concomitant]
     Active Substance: ASPIRIN DL-LYSINE
     Dosage: 1 DF, 1X/DAY
     Dates: end: 20150810
  12. GONAL-F [Concomitant]
     Active Substance: FOLLITROPIN
     Dosage: UNK
     Dates: start: 20150602, end: 20150810

REACTIONS (3)
  - Hepatic failure [Recovered/Resolved]
  - Product use issue [Recovered/Resolved]
  - Hepatitis [Recovered/Resolved]

NARRATIVE: CASE EVENT DATE: 2015
